FAERS Safety Report 16874273 (Version 1)
Quarter: 2019Q4

REPORT INFORMATION
  Report Type: Spontaneous
  Country: US (occurrence: US)
  Receive Date: 20191001
  Receipt Date: 20191001
  Transmission Date: 20200122
  Serious: Yes (Hospitalization)
  Sender: FDA-Public Use
  Company Number: PHHY2019US208763

PATIENT
  Age: 53 Year
  Sex: Female
  Weight: 37 kg

DRUGS (1)
  1. LUTATHERA [Suspect]
     Active Substance: LUTETIUM OXODOTREOTIDE LU-177
     Indication: NEUROENDOCRINE TUMOUR
     Dosage: 204 MCI, UNK
     Route: 042
     Dates: start: 20190627

REACTIONS (3)
  - Hepatic encephalopathy [Recovered/Resolved]
  - Hepatic function abnormal [Unknown]
  - Confusional state [Unknown]

NARRATIVE: CASE EVENT DATE: 20190627
